FAERS Safety Report 5845676-7 (Version None)
Quarter: 2008Q3

REPORT INFORMATION
  Report Type: 
  Country: None (occurrence: None)
  Receive Date: 20080731
  Receipt Date: 20080529
  Transmission Date: 20090109
  Serious: No
  Sender: FDA-Public Use
  Company Number: US200805006310

PATIENT
  Age: 71 Year
  Sex: Male
  Weight: 101.1 kg

DRUGS (11)
  1. BYETTA [Suspect]
     Indication: INSULIN-REQUIRING TYPE 2 DIABETES MELLITUS
     Dosage: 5 UG, 2/D, SUBCUTANEOUS
     Route: 058
     Dates: start: 20080522, end: 20080528
  2. NOVOLOG MIX 70/30 [Concomitant]
  3. COREG [Concomitant]
  4. LOTREL [Concomitant]
  5. ATACAND [Concomitant]
  6. SYNTHROID [Concomitant]
  7. LYRICA [Concomitant]
  8. AVODART [Concomitant]
  9. ASPIRIN /USA/ (ACETYLSALICYLIC ACID) [Concomitant]
  10. CENTRUM SILVER (ASCORBIC ACID, CALCIUM, MINERALS NOS, RETINOL, TOCOPHE [Concomitant]
  11. VITAMINS [Concomitant]

REACTIONS (6)
  - BLOOD GLUCOSE DECREASED [None]
  - CHEST PAIN [None]
  - DYSPEPSIA [None]
  - DYSPNOEA [None]
  - FLATULENCE [None]
  - NAUSEA [None]
